FAERS Safety Report 24582896 (Version 1)
Quarter: 2024Q4

REPORT INFORMATION
  Report Type: Report from Study
  Country: US (occurrence: US)
  Receive Date: 20241106
  Receipt Date: 20241106
  Transmission Date: 20250115
  Serious: Yes (Other)
  Sender: ALEXION PHARMACEUTICALS
  Company Number: 2023A177738, 2023A082982, 2022A303653, 2022A074677, 2021A692671

PATIENT

DRUGS (20)
  1. BENRALIZUMAB [Suspect]
     Active Substance: BENRALIZUMAB
     Indication: Asthma
     Dosage: 30 MILLIGRAM, Q8W
  2. BENRALIZUMAB [Suspect]
     Active Substance: BENRALIZUMAB
     Dosage: 30 MILLIGRAM, Q8W
  3. BENRALIZUMAB [Suspect]
     Active Substance: BENRALIZUMAB
     Dosage: 30 MILLIGRAM, Q8W
  4. BENRALIZUMAB [Suspect]
     Active Substance: BENRALIZUMAB
     Dosage: 30 MILLIGRAM, Q8W
  5. PLAVIX [Concomitant]
     Active Substance: CLOPIDOGREL BISULFATE
  6. ASPIRIN [Concomitant]
     Active Substance: ASPIRIN
  7. CARDIZEM [Concomitant]
     Active Substance: DILTIAZEM HYDROCHLORIDE
  8. CLOPIDOGREL [Concomitant]
     Active Substance: CLOPIDOGREL BISULFATE
  9. FOSAMAX [Concomitant]
     Active Substance: ALENDRONATE SODIUM
  10. VITAMIN C [Concomitant]
     Active Substance: ASCORBIC ACID
  11. ALENDRONATE [Concomitant]
     Active Substance: ALENDRONATE SODIUM
  12. LEVOCETIRIZINE DIHYDROCHLORIDE [Concomitant]
     Active Substance: LEVOCETIRIZINE DIHYDROCHLORIDE
  13. ALBUTEROL SULFATE [Concomitant]
     Active Substance: ALBUTEROL SULFATE
  14. ATORVASTATIN [Concomitant]
     Active Substance: ATORVASTATIN
  15. FAMOTIDINE [Concomitant]
     Active Substance: FAMOTIDINE
  16. MELOXICAM [Concomitant]
     Active Substance: MELOXICAM
  17. MONTELUKAST [Concomitant]
     Active Substance: MONTELUKAST
  18. VITAMINS [Concomitant]
     Active Substance: VITAMINS
  19. VITAMIN B COMPLEX PLUS [Concomitant]
  20. VITAMIN D [Concomitant]
     Active Substance: VITAMIN D NOS

REACTIONS (6)
  - Arterial rupture [Recovered/Resolved with Sequelae]
  - Arterial occlusive disease [Unknown]
  - Aneurysm [Unknown]
  - Bronchitis chronic [Unknown]
  - Abdominal discomfort [Unknown]
  - Chronic obstructive pulmonary disease [Unknown]
